FAERS Safety Report 16786958 (Version 1)
Quarter: 2019Q3

REPORT INFORMATION
  Report Type: Spontaneous
  Country: US (occurrence: US)
  Receive Date: 20190909
  Receipt Date: 20190909
  Transmission Date: 20191005
  Serious: No
  Sender: FDA-Public Use
  Company Number: US-SA-2019SA242823

PATIENT
  Sex: Female

DRUGS (1)
  1. DUPIXENT [Suspect]
     Active Substance: DUPILUMAB
     Indication: ECZEMA
     Dosage: 300 MG, QOW
     Route: 058
     Dates: start: 20170509

REACTIONS (4)
  - Scab [Unknown]
  - Pollakiuria [Not Recovered/Not Resolved]
  - Osteoporosis [Unknown]
  - Hypertonic bladder [Not Recovered/Not Resolved]
